FAERS Safety Report 23304545 (Version 1)
Quarter: 2023Q4

REPORT INFORMATION
  Report Type: Spontaneous
  Country: GR (occurrence: GR)
  Receive Date: 20231218
  Receipt Date: 20231218
  Transmission Date: 20240110
  Serious: Yes (Hospitalization)
  Sender: FDA-Public Use
  Company Number: GR-MACLEODS PHARMACEUTICALS US LTD-MAC2023044792

PATIENT

DRUGS (9)
  1. PROPYLTHIOURACIL [Suspect]
     Active Substance: PROPYLTHIOURACIL
     Indication: Hyperthyroidism
     Dosage: 300 MILLIGRAM, QD
     Route: 065
  2. PROPYLTHIOURACIL [Suspect]
     Active Substance: PROPYLTHIOURACIL
     Dosage: 400 MILLIGRAM, QD
     Route: 065
  3. CARBIMAZOLE [Suspect]
     Active Substance: CARBIMAZOLE
     Indication: Hyperthyroidism
     Dosage: 10 MILLIGRAM, QD
     Route: 065
  4. CARBIMAZOLE [Suspect]
     Active Substance: CARBIMAZOLE
     Dosage: 20 MILLIGRAM, QD
     Route: 065
  5. CARBIMAZOLE [Suspect]
     Active Substance: CARBIMAZOLE
     Dosage: 30 MILLIGRAM, QD
     Route: 065
  6. CARBIMAZOLE [Suspect]
     Active Substance: CARBIMAZOLE
     Dosage: UNK UNK, QD (45-60 MG DAILY)
     Route: 065
  7. CARBIMAZOLE [Suspect]
     Active Substance: CARBIMAZOLE
     Dosage: 15 MILLIGRAM, QD
     Route: 065
  8. SELENIUM [Concomitant]
     Active Substance: SELENIUM
     Indication: Hyperthyroidism
     Dosage: 200 MILLIGRAM, QD
     Route: 065
  9. METHIMAZOLE [Concomitant]
     Active Substance: METHIMAZOLE
     Indication: Hyperthyroidism
     Dosage: 60 MILLIGRAM, QD
     Route: 065

REACTIONS (2)
  - Drug resistance [Recovered/Resolved]
  - Maternal exposure during pregnancy [Unknown]
